FAERS Safety Report 20925342 (Version 1)
Quarter: 2022Q2

REPORT INFORMATION
  Report Type: Spontaneous
  Country: US (occurrence: US)
  Receive Date: 20220607
  Receipt Date: 20220607
  Transmission Date: 20220721
  Serious: Yes (Other)
  Sender: FDA-Public Use
  Company Number: US-PROCTER_AND_GAMBLE-GS22047236

PATIENT
  Sex: Male

DRUGS (1)
  1. OLAY COMPLETE UV 365 DAILY MOISTURIZER NORMAL BROAD SPECTRUM SPF 15 [Suspect]
     Active Substance: AVOBENZONE\HOMOSALATE\OCTISALATE\OCTOCRYLENE
     Dosage: USED A SMALL DROP, EVERY DAY.
     Route: 061
     Dates: start: 2022, end: 20220518

REACTIONS (8)
  - Swollen tongue [Recovered/Resolved]
  - Lip swelling [Recovered/Resolved]
  - Swelling of eyelid [Recovered/Resolved]
  - Condition aggravated [Not Recovered/Not Resolved]
  - Rash [Not Recovered/Not Resolved]
  - Pruritus [Not Recovered/Not Resolved]
  - Dry skin [Not Recovered/Not Resolved]
  - Exposure via eye contact [Unknown]

NARRATIVE: CASE EVENT DATE: 20220101
